FAERS Safety Report 7091177-0 (Version None)
Quarter: 2010Q4

REPORT INFORMATION
  Report Type: 
  Country: None (occurrence: None)
  Receive Date: 20101105
  Receipt Date: 20101105
  Transmission Date: 20110411
  Serious: No
  Sender: FDA-Public Use
  Company Number: None

PATIENT
  Sex: Female
  Weight: 70.5 kg

DRUGS (2)
  1. BUPROPION [Suspect]
     Indication: ANXIETY
     Dosage: 300 MG DAILY ORAL
     Route: 048
     Dates: start: 20081001, end: 20090401
  2. BUPROPION [Suspect]
     Indication: DEPRESSION
     Dosage: 300 MG DAILY ORAL
     Route: 048
     Dates: start: 20081001, end: 20090401

REACTIONS (2)
  - DRUG INEFFECTIVE [None]
  - PRODUCT SUBSTITUTION ISSUE [None]
